FAERS Safety Report 19191318 (Version 1)
Quarter: 2021Q2

REPORT INFORMATION
  Report Type: Report from Study
  Country: DE (occurrence: DE)
  Receive Date: 20210429
  Receipt Date: 20210429
  Transmission Date: 20210717
  Serious: Yes (Hospitalization)
  Sender: FDA-Public Use
  Company Number: DE-BIOGEN-2019BI00703268

PATIENT
  Age: 48 Year
  Sex: Male

DRUGS (6)
  1. TECFIDERA [Suspect]
     Active Substance: DIMETHYL FUMARATE
     Indication: MULTIPLE SCLEROSIS
     Dosage: MAINTENANCE DOSE
     Route: 048
     Dates: start: 20170501
  2. VITAMIN D [Concomitant]
     Active Substance: VITAMIN D NOS
     Indication: GENERAL SYMPTOM
     Route: 065
  3. VITAMIN B12 [Concomitant]
     Active Substance: CYANOCOBALAMIN
     Indication: GENERAL SYMPTOM
     Route: 065
  4. FOLIC ACID. [Concomitant]
     Active Substance: FOLIC ACID
     Indication: GENERAL SYMPTOM
     Route: 065
  5. VIAGRA [Concomitant]
     Active Substance: SILDENAFIL CITRATE
     Indication: URINARY RETENTION
     Route: 065
  6. TECFIDERA [Suspect]
     Active Substance: DIMETHYL FUMARATE
     Route: 048
     Dates: start: 20170501

REACTIONS (2)
  - Urinary tract infection [Recovered/Resolved]
  - Urethritis [Recovered/Resolved]

NARRATIVE: CASE EVENT DATE: 201901
